FAERS Safety Report 7356169-2 (Version None)
Quarter: 2011Q1

REPORT INFORMATION
  Report Type: 
  Country: None (occurrence: None)
  Receive Date: 20110316
  Receipt Date: 20110302
  Transmission Date: 20110831
  Serious: Yes (Hospitalization)
  Sender: FDA-Public Use
  Company Number: US-PFIZER INC-US-WYE-H13783410

PATIENT
  Sex: Female

DRUGS (8)
  1. COGENTIN [Concomitant]
     Indication: MOVEMENT DISORDER
     Dosage: UNK
     Route: 048
     Dates: start: 20091001
  2. LEVAQUIN [Interacting]
     Indication: INFECTION
     Dosage: 500 MG ONE IN ONE DAY
     Route: 048
     Dates: start: 20091013, end: 20091019
  3. ADVIL PM [Suspect]
     Indication: INSOMNIA
     Route: 065
  4. METRONIDAZOLE [Concomitant]
     Dosage: UNK
     Route: 048
     Dates: start: 20091001
  5. IBUPROFEN [Suspect]
     Indication: PRODUCT USED FOR UNKNOWN INDICATION
     Dosage: UNK
     Route: 065
  6. FLAGYL [Concomitant]
     Dosage: UNK
     Route: 048
     Dates: start: 20091010, end: 20091019
  7. AMBIEN [Interacting]
     Indication: INSOMNIA
     Dosage: 12.5 MG, UNK
     Route: 048
     Dates: start: 20090406, end: 20091019
  8. METRONIDAZOLE [Concomitant]
     Indication: INFECTION
     Dosage: 500 MG, UNK
     Dates: start: 20091010

REACTIONS (4)
  - INSOMNIA [None]
  - PARANOIA [None]
  - PSYCHOTIC DISORDER [None]
  - DRUG INTERACTION [None]
